FAERS Safety Report 6585299-8 (Version None)
Quarter: 2010Q1

REPORT INFORMATION
  Report Type: 
  Country: None (occurrence: None)
  Receive Date: 20100216
  Receipt Date: 20100216
  Transmission Date: 20100710
  Serious: Yes (Other)
  Sender: FDA-Public Use
  Company Number: None

PATIENT
  Age: 76 Year
  Sex: Male
  Weight: 103.4 kg

DRUGS (3)
  1. SPIRONOLACTONE [Suspect]
     Indication: CARDIAC FAILURE
     Dosage: 25 MG BID PO
     Route: 048
     Dates: start: 20081022, end: 20090609
  2. SPIRONOLACTONE [Suspect]
     Indication: CARDIAC FAILURE CONGESTIVE
     Dosage: 25 MG BID PO
     Route: 048
     Dates: start: 20081022, end: 20090609
  3. SPIRONOLACTONE [Suspect]
     Indication: RENAL FAILURE CHRONIC
     Dosage: 25 MG BID PO
     Route: 048
     Dates: start: 20081022, end: 20090609

REACTIONS (2)
  - BREAST TENDERNESS [None]
  - GYNAECOMASTIA [None]
